FAERS Safety Report 15286306 (Version 2)
Quarter: 2018Q4

REPORT INFORMATION
  Report Type: Spontaneous
  Country: US (occurrence: US)
  Receive Date: 20180816
  Receipt Date: 20181001
  Transmission Date: 20190204
  Serious: Yes (Hospitalization)
  Sender: FDA-Public Use
  Company Number: US-PFIZER INC-2018327904

PATIENT
  Age: 3 Year
  Sex: Female
  Weight: 12.25 kg

DRUGS (1)
  1. GENOTROPIN MQ [Suspect]
     Active Substance: SOMATROPIN
     Indication: HYPOPITUITARISM
     Dosage: 0.5 MG, DAILY(0.5 MG CRT INJECTION NIGHTLY)

REACTIONS (6)
  - Fungal infection [Recovering/Resolving]
  - Staphylococcal infection [Not Recovered/Not Resolved]
  - Weight decreased [Unknown]
  - Body height abnormal [Not Recovered/Not Resolved]
  - Impetigo [Unknown]
  - Product dose omission [Not Recovered/Not Resolved]

NARRATIVE: CASE EVENT DATE: 20180312
